FAERS Safety Report 5067086-5 (Version None)
Quarter: 2006Q3

REPORT INFORMATION
  Report Type: 
  Country: None (occurrence: None)
  Receive Date: 20060727
  Receipt Date: 20060713
  Transmission Date: 20061208
  Serious: Yes (Other)
  Sender: FDA-Public Use
  Company Number: 2006S1005421

PATIENT
  Age: 37 Year
  Sex: Female
  Weight: 120.2032 kg

DRUGS (6)
  1. AMITRIPTYLINE HCL [Suspect]
     Indication: BIPOLAR I DISORDER
     Dosage: 250 MG; QD; ORAL
     Route: 048
     Dates: start: 20060528, end: 20060608
  2. CLONAZEPAM [Concomitant]
  3. CARBAMAZEPINE [Concomitant]
  4. LISINOPRIL [Concomitant]
  5. RISPERIDONE [Concomitant]
  6. PAROXETINE HCL [Concomitant]

REACTIONS (7)
  - AGGRESSION [None]
  - AGITATION [None]
  - DEPRESSION [None]
  - DRUG INEFFECTIVE [None]
  - HOSTILITY [None]
  - IRRITABILITY [None]
  - SUICIDAL IDEATION [None]
